FAERS Safety Report 15956198 (Version 1)
Quarter: 2019Q1

REPORT INFORMATION
  Report Type: Report from Study
  Country: US (occurrence: US)
  Receive Date: 20190213
  Receipt Date: 20190213
  Transmission Date: 20190417
  Serious: Yes (Hospitalization, Other)
  Sender: FDA-Public Use
  Company Number: US-SA-2019SA035785

PATIENT
  Age: 79 Year
  Sex: Male

DRUGS (2)
  1. INSULIN GLARGINE [Suspect]
     Active Substance: INSULIN GLARGINE
     Dosage: 70 U, QD (EVERY MORNING)
     Route: 058
     Dates: start: 2017
  2. TRULICITY [Concomitant]
     Active Substance: DULAGLUTIDE
     Dosage: UNK

REACTIONS (8)
  - Device use error [Unknown]
  - Cardiac operation [Unknown]
  - Chest pain [Recovered/Resolved]
  - Tumour excision [Unknown]
  - Weight decreased [Not Recovered/Not Resolved]
  - Cholecystectomy [Unknown]
  - Inability to afford medication [Unknown]
  - Chest wall tumour [Recovered/Resolved]

NARRATIVE: CASE EVENT DATE: 2017
